FAERS Safety Report 8725745 (Version 4)
Quarter: 2012Q4

REPORT INFORMATION
  Report Type: 
  Country: JP (occurrence: JP)
  Receive Date: 20120816
  Receipt Date: 20120907
  Transmission Date: 20130627
  Serious: Yes (Hospitalization, Other)
  Sender: FDA-Public Use
  Company Number: BR-AMGEN-BRASP2012050893

PATIENT
  Age: 52 Year
  Sex: Male

DRUGS (9)
  1. ETANERCEPT [Suspect]
     Indication: RHEUMATOID ARTHRITIS
     Dosage: 50 mg, weekly
  2. TACROLIMUS [Suspect]
     Indication: RHEUMATOID ARTHRITIS
     Dosage: 1 mg/day
     Dates: start: 200708
  3. TACROLIMUS [Suspect]
     Dosage: 3 mg, daily
     Dates: start: 200808
  4. TACROLIMUS [Suspect]
     Dosage: 1 mg, daily
     Dates: start: 200811, end: 200901
  5. TACROLIMUS [Suspect]
     Dosage: 2 mg, daily
     Dates: start: 200901, end: 200902
  6. TACROLIMUS [Suspect]
     Dosage: 3 mg, daily
     Dates: start: 200902, end: 200904
  7. PREDNISOLONE [Concomitant]
     Indication: RHEUMATOID ARTHRITIS
     Dosage: 15 mg, daily
     Dates: start: 200901
  8. PREDNISOLONE [Concomitant]
     Dosage: 5 mg/day
     Dates: start: 200901
  9. METHOTREXAT                        /00113801/ [Concomitant]
     Indication: RHEUMATOID ARTHRITIS
     Dosage: 6 mg/week
     Dates: start: 2005

REACTIONS (3)
  - Antisynthetase syndrome [Recovered/Resolved]
  - Rheumatoid arthritis [Recovered/Resolved]
  - Interstitial lung disease [Recovered/Resolved]
